FAERS Safety Report 12138054 (Version 1)
Quarter: 2016Q1

REPORT INFORMATION
  Report Type: Spontaneous
  Country: JP (occurrence: JP)
  Receive Date: 20160302
  Receipt Date: 20160302
  Transmission Date: 20160526
  Serious: Yes (Other)
  Sender: FDA-Public Use
  Company Number: JP-MYLANLABS-2016M1008959

PATIENT

DRUGS (1)
  1. PREDNISOLONE. [Suspect]
     Active Substance: PREDNISOLONE
     Indication: EOSINOPHILIC PUSTULAR FOLLICULITIS
     Route: 048

REACTIONS (3)
  - Abortion spontaneous [Recovered/Resolved]
  - Intrauterine infection [Unknown]
  - Maternal exposure during pregnancy [Recovered/Resolved]
